FAERS Safety Report 16573202 (Version 1)
Quarter: 2019Q3

REPORT INFORMATION
  Report Type: Report from Study
  Country: IT (occurrence: IT)
  Receive Date: 20190715
  Receipt Date: 20190715
  Transmission Date: 20191004
  Serious: Yes (Hospitalization)
  Sender: FDA-Public Use
  Company Number: IT-MYLANLABS-2019M1064969

PATIENT
  Age: 81 Year
  Sex: Female

DRUGS (7)
  1. HALDOL [Suspect]
     Active Substance: HALOPERIDOL
     Indication: SENILE DEMENTIA
     Dosage: 15 GTT DROPS, QD
     Route: 048
     Dates: start: 20180915, end: 20190105
  2. CARDIOASPIRIN [Concomitant]
     Active Substance: ASPIRIN
     Dosage: 1 DOSAGE FORM
     Route: 048
  3. NITRODERM [Concomitant]
     Active Substance: NITROGLYCERIN
     Dosage: 1 DOSAGE FORM
     Route: 062
  4. LOBIVON [Concomitant]
     Active Substance: NEBIVOLOL HYDROCHLORIDE
     Dosage: 1 DOSAGE FORM
     Route: 048
  5. ENAPREN [Concomitant]
     Active Substance: ENALAPRIL MALEATE
     Dosage: 1 DOSAGE FORM
     Route: 048
  6. TORVAST [Concomitant]
     Active Substance: ATORVASTATIN
     Dosage: 1 DOSAGE FORM
     Route: 048
  7. QUETIAPINE. [Suspect]
     Active Substance: QUETIAPINE
     Indication: SENILE DEMENTIA
     Dosage: 50 MILLIGRAM, QD
     Route: 048
     Dates: start: 20180915, end: 20190105

REACTIONS (1)
  - Psychomotor skills impaired [Recovered/Resolved]

NARRATIVE: CASE EVENT DATE: 20190101
